FAERS Safety Report 6922175-2 (Version None)
Quarter: 2010Q3

REPORT INFORMATION
  Report Type: 
  Country: None (occurrence: None)
  Receive Date: 20100812
  Receipt Date: 20100804
  Transmission Date: 20110219
  Serious: Yes (Hospitalization)
  Sender: FDA-Public Use
  Company Number: CA-GENENTECH-305082

PATIENT
  Sex: Female

DRUGS (5)
  1. RITUXAN [Suspect]
     Indication: OSTEOCHONDROSIS
     Dosage: 375 MG/M2, SINGLE
     Route: 042
     Dates: start: 20100723
  2. DECADRON [Concomitant]
     Indication: PREMEDICATION
     Dosage: 10 MG, UNK
     Route: 042
     Dates: start: 20100723, end: 20100802
  3. ACETAMINOPHEN [Concomitant]
     Indication: PREMEDICATION
     Dosage: 650 MG, UNK
     Route: 048
     Dates: start: 20100723, end: 20100802
  4. BENADRYL [Concomitant]
     Indication: PREMEDICATION
     Dosage: 25 MG, SINGLE
     Route: 048
     Dates: start: 20100723, end: 20100723
  5. BENADRYL [Concomitant]
     Dosage: 50 MG, SINGLE
     Route: 048
     Dates: start: 20100802, end: 20100802

REACTIONS (5)
  - DIARRHOEA [None]
  - INFUSION RELATED REACTION [None]
  - NAUSEA [None]
  - PYREXIA [None]
  - VOMITING [None]
